FAERS Safety Report 7425771-1 (Version None)
Quarter: 2011Q2

REPORT INFORMATION
  Report Type: 
  Country: None (occurrence: None)
  Receive Date: 20110418
  Receipt Date: 20110418
  Transmission Date: 20111010
  Serious: Yes (Death)
  Sender: FDA-Public Use
  Company Number: None

PATIENT
  Age: 70 Year
  Sex: Male
  Weight: 58.2 kg

DRUGS (6)
  1. ZACTIMA [Suspect]
     Indication: OESOPHAGEAL CARCINOMA
     Dosage: 100MG QD/100MGQOD
     Dates: start: 20090129, end: 20090205
  2. ZACTIMA [Suspect]
     Indication: OESOPHAGEAL CARCINOMA
     Dosage: 100MG QD/100MGQOD
     Dates: start: 20090223, end: 20090413
  3. DOCETAXEL [Suspect]
     Indication: OESOPHAGEAL CARCINOMA
     Dosage: 63MG  ; 50MG
     Dates: start: 20090129, end: 20090223
  4. DOCETAXEL [Suspect]
     Indication: OESOPHAGEAL CARCINOMA
     Dosage: 63MG  ; 50MG
     Dates: start: 20090225, end: 20090426
  5. OXALIPLATIN [Suspect]
     Indication: OESOPHAGEAL CARCINOMA
     Dosage: 180MG ; 135MG
     Dates: start: 20090129, end: 20090223
  6. OXALIPLATIN [Suspect]
     Indication: OESOPHAGEAL CARCINOMA
     Dosage: 180MG ; 135MG
     Dates: start: 20090225, end: 20090426

REACTIONS (1)
  - DISEASE PROGRESSION [None]
